FAERS Safety Report 9448808 (Version 1)
Quarter: 2013Q3

REPORT INFORMATION
  Report Type: Report from Study
  Country: US (occurrence: US)
  Receive Date: 20130808
  Receipt Date: 20130808
  Transmission Date: 20140515
  Serious: Yes (Other)
  Sender: FDA-Public Use
  Company Number: US-US-EMD SERONO, INC.-7228246

PATIENT
  Age: 56 Year
  Sex: Female

DRUGS (3)
  1. REBIF [Suspect]
     Indication: MULTIPLE SCLEROSIS
  2. KEPPRA [Concomitant]
     Indication: CONVULSION
  3. LAMICTAL [Concomitant]
     Indication: CONVULSION

REACTIONS (2)
  - Appendicitis [Recovered/Resolved]
  - Scar [Unknown]
